FAERS Safety Report 15983611 (Version 15)
Quarter: 2022Q4

REPORT INFORMATION
  Report Type: Other
  Country: DE (occurrence: None)
  Receive Date: 20190220
  Receipt Date: 20221222
  Transmission Date: 20230113
  Serious: Yes (Hospitalization, Other)
  Sender: FDA-Public Use
  Company Number: DE-ROCHE-2229092

PATIENT
  Age: 37 Year
  Sex: Female

DRUGS (17)
  1. OCREVUS [Suspect]
     Active Substance: OCRELIZUMAB
     Indication: Relapsing-remitting multiple sclerosis
     Route: 042
     Dates: start: 20181122
  2. OCREVUS [Suspect]
     Active Substance: OCRELIZUMAB
     Route: 042
     Dates: start: 20190815
  3. OCREVUS [Suspect]
     Active Substance: OCRELIZUMAB
     Route: 042
     Dates: start: 20200409
  4. OCREVUS [Suspect]
     Active Substance: OCRELIZUMAB
     Route: 042
     Dates: start: 20201124
  5. OCREVUS [Suspect]
     Active Substance: OCRELIZUMAB
     Route: 042
     Dates: start: 202105
  6. OCREVUS [Suspect]
     Active Substance: OCRELIZUMAB
     Route: 042
     Dates: start: 202105
  7. CEFUROXIME [Suspect]
     Active Substance: CEFUROXIME
     Indication: Nephritis
     Route: 042
  8. VAXZEVRIA [Suspect]
     Active Substance: AZD-1222
     Indication: Product used for unknown indication
     Route: 065
     Dates: start: 20210326, end: 20210326
  9. COMIRNATY [Suspect]
     Active Substance: TOZINAMERAN
     Indication: Product used for unknown indication
     Route: 065
     Dates: start: 20210709
  10. MODERNA COVID-19 VACCINE [Suspect]
     Active Substance: ELASOMERAN
     Indication: Product used for unknown indication
     Route: 065
     Dates: start: 202201
  11. EFEROX [Concomitant]
     Active Substance: LEVOTHYROXINE SODIUM
     Dosage: 1-0-0
  12. CITALOPRAM [Concomitant]
     Active Substance: CITALOPRAM HYDROBROMIDE
     Dosage: 1-0-0
  13. METHIONINE [Concomitant]
     Active Substance: METHIONINE
     Dosage: 2-0-0
  14. SODIUM PROPIONATE [Concomitant]
     Active Substance: SODIUM PROPIONATE
     Dosage: 1-0-0
  15. SPASMEX (GERMANY) [Concomitant]
  16. SYMBIOLACT [Concomitant]
  17. CHOLECALCIFEROL [Concomitant]
     Active Substance: CHOLECALCIFEROL

REACTIONS (28)
  - Fall [Unknown]
  - Migraine [Recovered/Resolved]
  - Nephritis [Recovered/Resolved]
  - Infection [Unknown]
  - Clostridial infection [Recovered/Resolved]
  - Fatigue [Recovered/Resolved]
  - Nasopharyngitis [Recovered/Resolved]
  - Fatigue [Recovered/Resolved]
  - Herpes virus infection [Recovered/Resolved]
  - Abdominal discomfort [Recovered/Resolved]
  - Gingivitis [Recovered/Resolved]
  - Back pain [Recovered/Resolved]
  - Headache [Recovered/Resolved]
  - Malaise [Recovered/Resolved]
  - SARS-CoV-2 antibody test negative [Recovering/Resolving]
  - Apathy [Unknown]
  - Pain in extremity [Unknown]
  - COVID-19 [Recovered/Resolved]
  - Cough [Recovering/Resolving]
  - Paraesthesia [Recovered/Resolved]
  - Pain in extremity [Recovered/Resolved]
  - Pyrexia [Recovered/Resolved]
  - Muscular weakness [Recovered/Resolved]
  - Hyponatraemia [Not Recovered/Not Resolved]
  - Body temperature increased [Recovered/Resolved]
  - Cystitis noninfective [Recovered/Resolved]
  - Trigeminal neuralgia [Not Recovered/Not Resolved]
  - Feeling hot [Not Recovered/Not Resolved]

NARRATIVE: CASE EVENT DATE: 20181122
